FAERS Safety Report 22333871 (Version 1)
Quarter: 2023Q2

REPORT INFORMATION
  Report Type: Spontaneous
  Country: US (occurrence: US)
  Receive Date: 20230517
  Receipt Date: 20230517
  Transmission Date: 20230721
  Serious: No
  Sender: FDA-Public Use
  Company Number: US-AIMMUNE THERAPEUTICS, INC.-2022AIMT02848

PATIENT

DRUGS (4)
  1. PALFORZIA [Suspect]
     Active Substance: PEANUT
     Indication: Food allergy
     Dosage: IDE (0.5MG-6MG), ONCE
     Route: 048
     Dates: start: 20220628, end: 20220628
  2. PALFORZIA [Suspect]
     Active Substance: PEANUT
     Dosage: 300 MG, ONCE, FIRST AND LAST DOSE PRIOR TO EVENT
     Route: 048
     Dates: start: 20221214, end: 20221214
  3. PALFORZIA [Suspect]
     Active Substance: PEANUT
     Dosage: 240 MG, 1X/DAY, DOSE DECREASED
     Route: 048
     Dates: start: 20221215, end: 20230103
  4. PALFORZIA [Suspect]
     Active Substance: PEANUT
     Dosage: 300 MG, 1X/DAY, RE-UPDOSED
     Route: 048
     Dates: start: 20230104

REACTIONS (2)
  - Anxiety [Recovered/Resolved]
  - Throat irritation [Recovered/Resolved]

NARRATIVE: CASE EVENT DATE: 20221214
